FAERS Safety Report 6208985-8 (Version None)
Quarter: 2009Q2

REPORT INFORMATION
  Report Type: 
  Country: None (occurrence: None)
  Receive Date: 20090529
  Receipt Date: 20090515
  Transmission Date: 20091009
  Serious: Yes (Death, Hospitalization)
  Sender: FDA-Public Use
  Company Number: PHHY2009ES20141

PATIENT
  Age: 14 Year
  Sex: Male

DRUGS (3)
  1. PROLEUKIN [Suspect]
     Dosage: 4 MU/M^2 GIVEN TWICE DAILY IN 5-DAY COURSES EVERY 8 WEEKS FOR 6 CYCLES
     Route: 058
  2. GANCICLOVIR [Concomitant]
  3. FOSCARNET [Concomitant]

REACTIONS (9)
  - CAPILLARY LEAK SYNDROME [None]
  - CONDITION AGGRAVATED [None]
  - CYTOMEGALOVIRUS CHORIORETINITIS [None]
  - HYPOTENSION [None]
  - MULTI-ORGAN FAILURE [None]
  - RECTAL HAEMORRHAGE [None]
  - RENAL FAILURE [None]
  - RESPIRATORY FAILURE [None]
  - VIRAL LOAD INCREASED [None]
